FAERS Safety Report 23404441 (Version 15)
Quarter: 2025Q1

REPORT INFORMATION
  Report Type: Report from Study
  Country: AR (occurrence: AR)
  Receive Date: 20240116
  Receipt Date: 20250317
  Transmission Date: 20250409
  Serious: Yes (Other)
  Sender: AMGEN
  Company Number: AR-AMGEN-ARGSL2023125596

PATIENT
  Age: 74 Year
  Sex: Male

DRUGS (4)
  1. VECTIBIX [Suspect]
     Active Substance: PANITUMUMAB
     Indication: Colorectal cancer
     Dosage: UNK, Q2WK
     Route: 065
     Dates: start: 20230125
  2. VECTIBIX [Suspect]
     Active Substance: PANITUMUMAB
     Dosage: UNK UNK, Q3WK (21 DAYS)
     Route: 065
     Dates: start: 20240221
  3. VECTIBIX [Suspect]
     Active Substance: PANITUMUMAB
     Dosage: UNK , Q2WK
     Route: 065
     Dates: start: 2024
  4. VECTIBIX [Suspect]
     Active Substance: PANITUMUMAB
     Route: 065
     Dates: start: 2024

REACTIONS (8)
  - Hypertension [Recovering/Resolving]
  - Bronchitis [Unknown]
  - Dengue fever [Not Recovered/Not Resolved]
  - Rash [Not Recovered/Not Resolved]
  - Acne [Not Recovered/Not Resolved]
  - Asthenia [Unknown]
  - Decreased immune responsiveness [Not Recovered/Not Resolved]
  - Off label use [Unknown]

NARRATIVE: CASE EVENT DATE: 20230101
